FAERS Safety Report 24159339 (Version 1)
Quarter: 2024Q3

REPORT INFORMATION
  Report Type: Report from Study
  Country: US (occurrence: US)
  Receive Date: 20240731
  Receipt Date: 20240731
  Transmission Date: 20241017
  Serious: No
  Sender: AURINIA PHARMACEUTICALS
  Company Number: US-AURINIA PHARMACEUTICALS INC.-AUR-005350

PATIENT
  Age: 21 Year
  Sex: Female
  Weight: 103.5 kg

DRUGS (24)
  1. LUPKYNIS [Suspect]
     Active Substance: VOCLOSPORIN
     Indication: Lupus nephritis
     Dosage: 23.7 MILLIGRAM, BID
     Route: 048
     Dates: start: 20230930
  2. BENLYSTA [Concomitant]
     Active Substance: BELIMUMAB
     Indication: Systemic lupus erythematosus
     Dosage: UNK
     Dates: start: 20230828
  3. LOSARTAN [Concomitant]
     Active Substance: LOSARTAN
     Indication: Hypertension
     Dosage: UNK
     Dates: start: 20230811
  4. AMLODIPINE [Concomitant]
     Active Substance: AMLODIPINE BESYLATE
     Indication: Hypertension
     Dosage: UNK
     Dates: start: 20231007
  5. PREDNISONE [Concomitant]
     Active Substance: PREDNISONE
     Indication: Systemic lupus erythematosus
     Dosage: UNK
     Dates: start: 20231129
  6. MYCOPHENOLIC ACID [Concomitant]
     Active Substance: MYCOPHENOLIC ACID
     Indication: Lupus nephritis
     Dosage: UNK
     Dates: start: 20231124
  7. HYDROXYCHLOROQUINE [Concomitant]
     Active Substance: HYDROXYCHLOROQUINE
     Indication: Systemic lupus erythematosus
     Dosage: UNK
     Dates: start: 20220829
  8. FUROSEMIDE [Concomitant]
     Active Substance: FUROSEMIDE
     Indication: Oedema
     Dosage: UNK
     Dates: start: 20220905
  9. AMITRIPTYLINE [Concomitant]
     Active Substance: AMITRIPTYLINE
     Indication: Anxiety
     Dosage: UNK
     Dates: start: 20230626
  10. CYCLOBENZAPRINE [Concomitant]
     Active Substance: CYCLOBENZAPRINE
     Indication: Myalgia
     Dosage: UNK
     Dates: start: 20230626
  11. VITAMIN D NOS [Concomitant]
     Active Substance: CHOLECALCIFEROL\ERGOCALCIFEROL
     Indication: Vitamin D deficiency
     Dosage: UNK
     Dates: start: 20220901
  12. DICLOFENAC [Concomitant]
     Active Substance: DICLOFENAC
     Indication: Arthralgia
     Dosage: UNK
     Dates: start: 20220930
  13. MAGNESIUM OXIDE [Concomitant]
     Active Substance: MAGNESIUM OXIDE
     Indication: Supplementation therapy
     Dosage: UNK
     Dates: start: 20221209
  14. ONDANSETRON [Concomitant]
     Active Substance: ONDANSETRON
     Indication: Nausea
     Dosage: UNK
     Dates: start: 20220802
  15. ACETAMINOPHEN [Concomitant]
     Active Substance: ACETAMINOPHEN
     Indication: Pain
     Dosage: UNK
     Dates: start: 20231007
  16. HYDROXYZINE [Concomitant]
     Active Substance: HYDROXYZINE HYDROCHLORIDE
     Indication: Anxiety
     Dosage: UNK
     Dates: start: 20231006
  17. PANTOPRAZOLE [Concomitant]
     Active Substance: PANTOPRAZOLE
     Indication: Dyspepsia
     Dosage: UNK
     Dates: start: 20231006
  18. COLCHICINE [Concomitant]
     Active Substance: COLCHICINE
     Indication: Blood uric acid increased
     Dosage: UNK
     Dates: start: 20231124
  19. POLYETHYLENE GLYCOL\PROPYLENE GLYCOL [Concomitant]
     Active Substance: POLYETHYLENE GLYCOL\PROPYLENE GLYCOL
     Indication: Constipation
     Dosage: UNK
     Dates: start: 20231125
  20. MELATONIN [Concomitant]
     Active Substance: MELATONIN
     Indication: Supplementation therapy
     Dosage: UNK
     Dates: start: 20231129
  21. OXYCODONE [Concomitant]
     Active Substance: OXYCODONE
     Indication: Pain
     Dosage: UNK
     Dates: start: 20231129
  22. NALOXONE [Concomitant]
     Active Substance: NALOXONE
     Indication: Pain management
     Dosage: UNK
     Dates: start: 20231124
  23. CYANOCOBALAMIN [Concomitant]
     Active Substance: CYANOCOBALAMIN
     Indication: Supplementation therapy
     Dates: start: 20231208
  24. GABAPENTIN [Concomitant]
     Active Substance: GABAPENTIN
     Indication: Osteonecrosis
     Dosage: UNK
     Dates: start: 20231223

REACTIONS (1)
  - Lung cyst [Not Recovered/Not Resolved]

NARRATIVE: CASE EVENT DATE: 20240121
